FAERS Safety Report 5056820-6 (Version None)
Quarter: 2006Q2

REPORT INFORMATION
  Report Type: 
  Country: None (occurrence: None)
  Receive Date: 20060619
  Receipt Date: 20050527
  Transmission Date: 20061013
  Serious: Yes (Disabling)
  Sender: FDA-Public Use
  Company Number: WAES 0505USA03331

PATIENT
  Age: 64 Year
  Sex: Male

DRUGS (6)
  1. COZAAR [Suspect]
     Indication: PROPHYLAXIS
     Dosage: 50 MG/DAILY/PO
     Route: 048
     Dates: start: 20050415, end: 20050430
  2. AVANDIA [Concomitant]
  3. LANTUS [Concomitant]
  4. LEXAPRO [Concomitant]
  5. ERYTHROMYCIN [Concomitant]
  6. METFORMIN [Concomitant]

REACTIONS (1)
  - COUGH [None]
